FAERS Safety Report 16067432 (Version 2)
Quarter: 2019Q1

REPORT INFORMATION
  Report Type: Spontaneous
  Country: JP (occurrence: JP)
  Receive Date: 20190313
  Receipt Date: 20190328
  Transmission Date: 20190418
  Serious: Yes (Hospitalization)
  Sender: FDA-Public Use
  Company Number: JP-EISAI MEDICAL RESEARCH-EC-2019-052653

PATIENT
  Age: 79 Year
  Sex: Male
  Weight: 51 kg

DRUGS (1)
  1. LENVIMA [Suspect]
     Active Substance: LENVATINIB
     Indication: HEPATOCELLULAR CARCINOMA
     Route: 048
     Dates: start: 20190212, end: 20190218

REACTIONS (2)
  - Tumour haemorrhage [Unknown]
  - Blood bilirubin increased [Recovering/Resolving]

NARRATIVE: CASE EVENT DATE: 20190218
